FAERS Safety Report 20126857 (Version 3)
Quarter: 2021Q4

REPORT INFORMATION
  Report Type: Spontaneous
  Country: MY (occurrence: MY)
  Receive Date: 20211129
  Receipt Date: 20211222
  Transmission Date: 20220303
  Serious: Yes (Death, Other)
  Sender: FDA-Public Use
  Company Number: MY-MLMSERVICE-20211111-3213606-1

PATIENT
  Age: 40 Year
  Sex: Female

DRUGS (20)
  1. ADRIAMYCIN [Suspect]
     Active Substance: DOXORUBICIN HYDROCHLORIDE
     Indication: Hodgkin^s disease nodular sclerosis stage IV
     Dosage: CYCLIC (1 CYCLE)
  2. ADRIAMYCIN [Suspect]
     Active Substance: DOXORUBICIN HYDROCHLORIDE
     Dosage: CYCLIC (4 CYCLES)
  3. ETOPOSIDE [Suspect]
     Active Substance: ETOPOSIDE
     Indication: Hodgkin^s disease nodular sclerosis stage IV
     Dosage: CYCLIC (3 CYCLES)
  4. CYTARABINE [Suspect]
     Active Substance: CYTARABINE
     Indication: Hodgkin^s disease nodular sclerosis stage IV
     Dosage: CYCLIC (5 CYCLES)
  5. CYTARABINE [Suspect]
     Active Substance: CYTARABINE
     Dosage: CYCLIC (3 CYCLES)
  6. BLEOMYCIN SULFATE [Suspect]
     Active Substance: BLEOMYCIN SULFATE
     Indication: Hodgkin^s disease nodular sclerosis stage IV
     Dosage: CYCLIC (1 CYCLE)
  7. VINBLASTINE [Suspect]
     Active Substance: VINBLASTINE
     Indication: Hodgkin^s disease nodular sclerosis stage IV
     Dosage: CYCLIC (1 CYCLE)
  8. VINBLASTINE [Suspect]
     Active Substance: VINBLASTINE
     Dosage: CYCLIC (4 CYCLES)
  9. DACARBAZINE [Suspect]
     Active Substance: DACARBAZINE
     Indication: Hodgkin^s disease nodular sclerosis stage IV
     Dosage: CYCLIC (1 CYCLE)
  10. DACARBAZINE [Suspect]
     Active Substance: DACARBAZINE
     Dosage: CYCLIC (4 CYCLES)
  11. IFOSFAMIDE [Suspect]
     Active Substance: IFOSFAMIDE
     Indication: Hodgkin^s disease nodular sclerosis stage IV
     Dosage: CYCLIC (3 CYCLES)
  12. CARBOPLATIN [Suspect]
     Active Substance: CARBOPLATIN
     Indication: Hodgkin^s disease nodular sclerosis stage IV
     Dosage: CYCLIC (3 CYSLES)
  13. CARBOPLATIN [Suspect]
     Active Substance: CARBOPLATIN
     Dosage: CYCLIC (3 CYCLES)
  14. BRENTUXIMAB [Suspect]
     Active Substance: BRENTUXIMAB
     Indication: Neoplasm progression
     Dosage: UNK
  15. BRENTUXIMAB [Suspect]
     Active Substance: BRENTUXIMAB
     Indication: Refractory cancer
  16. GEMCITABINE [Suspect]
     Active Substance: GEMCITABINE
     Indication: Hodgkin^s disease nodular sclerosis stage IV
     Dosage: CYCLIC (5 CYCLES)
  17. DEXAMETHASONE [Suspect]
     Active Substance: DEXAMETHASONE
     Indication: Hodgkin^s disease nodular sclerosis stage IV
     Dosage: CYCLIC (5 CYCLES)
  18. DEXAMETHASONE [Suspect]
     Active Substance: DEXAMETHASONE
     Dosage: CYCLIC (3 CYCLES)
  19. PREDNISOLONE [Concomitant]
     Active Substance: PREDNISOLONE
     Indication: Immunosuppression
     Dosage: UNK
  20. CYCLOSPORINE [Concomitant]
     Active Substance: CYCLOSPORINE
     Indication: Immunosuppression
     Dosage: UNK

REACTIONS (2)
  - Second primary malignancy [Fatal]
  - Acute myeloid leukaemia [Fatal]
